FAERS Safety Report 15563047 (Version 1)
Quarter: 2018Q4

REPORT INFORMATION
  Report Type: Spontaneous
  Country: ES (occurrence: ES)
  Receive Date: 20181029
  Receipt Date: 20181029
  Transmission Date: 20190205
  Serious: Yes (Hospitalization)
  Sender: FDA-Public Use
  Company Number: ES-SA-2018SA293061

PATIENT
  Age: 31 Year
  Sex: Female

DRUGS (2)
  1. CEREZYME [Suspect]
     Active Substance: IMIGLUCERASE
     Dosage: 30IU/KG
     Route: 041
     Dates: start: 2008, end: 201805
  2. CEREZYME [Suspect]
     Active Substance: IMIGLUCERASE
     Indication: GAUCHER^S DISEASE TYPE I
     Dosage: 60IU/KG
     Route: 041
     Dates: start: 2003, end: 2008

REACTIONS (1)
  - Dissociative disorder [Unknown]

NARRATIVE: CASE EVENT DATE: 201604
